FAERS Safety Report 10730329 (Version 1)
Quarter: 2015Q1

REPORT INFORMATION
  Report Type: Spontaneous
  Country: CH (occurrence: CH)
  Receive Date: 20150122
  Receipt Date: 20150122
  Transmission Date: 20150721
  Serious: Yes (Other)
  Sender: FDA-Public Use
  Company Number: CH-PFIZER INC-2015016977

PATIENT
  Age: 54 Year
  Sex: Male

DRUGS (4)
  1. AMSACRINE [Suspect]
     Active Substance: AMSACRINE
     Indication: MYELODYSPLASTIC SYNDROME
     Dosage: 120 MG/M2, 1X/DAY
     Route: 041
     Dates: start: 20141229, end: 20141231
  2. CYTARABINE. [Suspect]
     Active Substance: CYTARABINE
     Indication: MYELODYSPLASTIC SYNDROME
     Dosage: 200 MG/M2, 1X/DAY
     Route: 041
     Dates: start: 20141121, end: 20141128
  3. CYTARABINE. [Suspect]
     Active Substance: CYTARABINE
     Dosage: 1000 MG/M2, 2X/DAY
     Route: 041
     Dates: start: 20141229, end: 20150103
  4. IDARUBICIN HCL [Suspect]
     Active Substance: IDARUBICIN HYDROCHLORIDE
     Indication: MYELODYSPLASTIC SYNDROME
     Dosage: 12 MG/M2, 1X/DAY
     Route: 041
     Dates: start: 20141121, end: 20141123

REACTIONS (4)
  - Rash [Not Recovered/Not Resolved]
  - Pericardial effusion [Not Recovered/Not Resolved]
  - Agranulocytosis [Not Recovered/Not Resolved]
  - Pyrexia [Not Recovered/Not Resolved]

NARRATIVE: CASE EVENT DATE: 20150101
